FAERS Safety Report 9763917 (Version 2)
Quarter: 2013Q4

REPORT INFORMATION
  Report Type: Spontaneous
  Country: FR (occurrence: FR)
  Receive Date: 20131216
  Receipt Date: 20131223
  Transmission Date: 20140711
  Serious: Yes (Hospitalization)
  Sender: FDA-Public Use
  Company Number: FR-US-EMD SERONO, INC.-7255299

PATIENT
  Age: 33 Year
  Sex: Female

DRUGS (7)
  1. GONAL-F [Suspect]
     Indication: IN VITRO FERTILISATION
     Route: 058
     Dates: start: 20121018, end: 20121025
  2. OVITRELLE [Suspect]
     Indication: IN VITRO FERTILISATION
     Route: 058
     Dates: start: 20121030
  3. SYNAREL [Suspect]
     Indication: IN VITRO FERTILISATION
     Route: 045
     Dates: start: 20121018, end: 20121019
  4. MENOPUR /01277604/ [Suspect]
     Indication: IN VITRO FERTILISATION
     Route: 058
     Dates: start: 20121026, end: 20121029
  5. MENOPUR /01277604/ [Suspect]
     Route: 058
     Dates: start: 20121029, end: 20121029
  6. UTROGESTAN [Suspect]
     Indication: IN VITRO FERTILISATION
     Route: 067
     Dates: start: 20121105
  7. ORGALUTRAN /01453701/ [Suspect]
     Indication: IN VITRO FERTILISATION
     Dosage: 0.25 MG PER 0.5 ML, SOLUTION FOR INJECTION
     Route: 058
     Dates: start: 20121024, end: 20121029

REACTIONS (3)
  - Ovarian hyperstimulation syndrome [Recovered/Resolved]
  - Ascites [Recovered/Resolved]
  - Pleural effusion [Recovered/Resolved]
